FAERS Safety Report 24118984 (Version 1)
Quarter: 2024Q3

REPORT INFORMATION
  Report Type: Spontaneous
  Country: EG (occurrence: EG)
  Receive Date: 20240722
  Receipt Date: 20240722
  Transmission Date: 20241017
  Serious: Yes (Hospitalization)
  Sender: ACCORD
  Company Number: EG-Accord-436153

PATIENT
  Age: 58 Year
  Sex: Male

DRUGS (2)
  1. TRAZODONE HYDROCHLORIDE [Interacting]
     Active Substance: TRAZODONE HYDROCHLORIDE
     Indication: Insomnia
     Dosage: INITIALLY 50 MG/ DAY (7 DAY) THEN 100 MG/DAY?(FOR 7 DAYS) AT BEDTIME.
  2. LOSARTAN [Interacting]
     Active Substance: LOSARTAN
     Indication: Hypertension

REACTIONS (3)
  - Parkinsonism [Recovered/Resolved]
  - Intentional product use issue [Unknown]
  - Drug interaction [Unknown]
